FAERS Safety Report 9141402 (Version 2)
Quarter: 2013Q2

REPORT INFORMATION
  Report Type: Spontaneous
  Country: US (occurrence: US)
  Receive Date: 20130305
  Receipt Date: 20130506
  Transmission Date: 20140414
  Serious: No
  Sender: FDA-Public Use
  Company Number: US-AMGEN-USASP2013010384

PATIENT
  Age: 69 Year
  Sex: Female
  Weight: 84 kg

DRUGS (6)
  1. ENBREL [Suspect]
     Indication: RHEUMATOID ARTHRITIS
     Dosage: 50 MG, QWK
     Route: 058
     Dates: start: 201111
  2. METHOTREXATE [Concomitant]
     Indication: ARTHRITIS
     Dosage: 17.5 MG, QWK
     Route: 048
     Dates: start: 201110
  3. HYDROXYCHLOROQUINE [Concomitant]
     Dosage: 200 MG, QD
     Route: 048
  4. ZOLOFT [Concomitant]
     Dosage: UNK
  5. LIPITOR [Concomitant]
     Dosage: UNK
  6. OXYCODON [Concomitant]
     Dosage: UNK

REACTIONS (4)
  - Arthralgia [Not Recovered/Not Resolved]
  - Skin reaction [Unknown]
  - Rash [Unknown]
  - Pruritus [Unknown]
